FAERS Safety Report 25553101 (Version 1)
Quarter: 2025Q3

REPORT INFORMATION
  Report Type: Spontaneous
  Country: CN (occurrence: CN)
  Receive Date: 20250715
  Receipt Date: 20250715
  Transmission Date: 20251021
  Serious: Yes (Hospitalization, Other)
  Sender: ABBVIE
  Company Number: CN-ABBVIE-6366879

PATIENT
  Age: 62 Year
  Sex: Male
  Weight: 54 kg

DRUGS (10)
  1. VENETOCLAX [Suspect]
     Active Substance: VENETOCLAX
     Indication: Acute leukaemia
     Dosage: 100 MILLIGRAM D1
     Route: 048
     Dates: start: 20250621, end: 20250621
  2. VENETOCLAX [Suspect]
     Active Substance: VENETOCLAX
     Indication: Acute leukaemia
     Dosage: 200 MILLIGRAM D2
     Route: 048
     Dates: start: 20250622, end: 20250622
  3. VENETOCLAX [Suspect]
     Active Substance: VENETOCLAX
     Indication: Acute leukaemia
     Dosage: 400 MILLIGRAM, DAY 3-28
     Route: 048
     Dates: start: 20250623
  4. OMACETAXINE MEPESUCCINATE [Suspect]
     Active Substance: OMACETAXINE MEPESUCCINATE
     Indication: Acute leukaemia
     Dosage: 1 MILLIGRAM, INTRAVENOUS DRIP
     Dates: start: 20250621, end: 20250621
  5. AZACITIDINE [Suspect]
     Active Substance: AZACITIDINE
     Indication: Acute leukaemia
     Dosage: 100 MILLIGRAM, AZACITIDINE FOR INJECTION, DAY 1, 3, 5, 7, 9, INTRAVENOUS DRIP
     Dates: start: 20250621, end: 20250629
  6. CYTARABINE [Suspect]
     Active Substance: CYTARABINE
     Indication: Acute leukaemia
     Dosage: 0.02 GRAM, INJECTION, INTRAVENOUS DRIP
     Dates: start: 20250621, end: 20250628
  7. CYTARABINE [Suspect]
     Active Substance: CYTARABINE
     Indication: Acute leukaemia
     Dosage: 0.02 GRAM, INJECTION, DAY 1-7, 5% GS 250 M, INTRAVENOUS DRIP
     Dates: start: 2025
  8. STERILE WATER FOR INJECTION [Concomitant]
     Active Substance: WATER
     Indication: Acute myeloid leukaemia
     Route: 065
  9. SODIUM CHLORIDE [Concomitant]
     Active Substance: SODIUM CHLORIDE
     Indication: Acute myeloid leukaemia
     Route: 065
  10. DEXTROSE [Concomitant]
     Active Substance: DEXTROSE MONOHYDRATE
     Indication: Acute myeloid leukaemia
     Route: 065

REACTIONS (2)
  - Myelosuppression [Not Recovered/Not Resolved]
  - Full blood count decreased [Not Recovered/Not Resolved]

NARRATIVE: CASE EVENT DATE: 20250702
